FAERS Safety Report 4293882-8 (Version None)
Quarter: 2004Q1

REPORT INFORMATION
  Report Type: 
  Country: None (occurrence: None)
  Receive Date: 20040211
  Receipt Date: 20040129
  Transmission Date: 20041129
  Serious: Yes (Other)
  Sender: FDA-Public Use
  Company Number: 2003013531

PATIENT
  Age: 59 Year
  Sex: Female

DRUGS (2)
  1. PHENELZINE SULFATE (PHENELZINE SULFATE) [Suspect]
     Indication: PANIC DISORDER
     Dosage: 45 MG (TID), ORAL
     Route: 048
  2. BROMAZEPAM (BROMAZEPAM) [Concomitant]

REACTIONS (13)
  - BLOOD PRESSURE DECREASED [None]
  - CHEMICAL POISONING [None]
  - DIZZINESS [None]
  - EYE DISORDER [None]
  - FATIGUE [None]
  - FEELING ABNORMAL [None]
  - HEADACHE [None]
  - LOSS OF CONSCIOUSNESS [None]
  - SOMNOLENCE [None]
  - TINNITUS [None]
  - TREMOR [None]
  - VOMITING [None]
  - WEIGHT DECREASED [None]
